FAERS Safety Report 9364545 (Version 1)
Quarter: 2013Q2

REPORT INFORMATION
  Report Type: Spontaneous
  Country: JP (occurrence: None)
  Receive Date: 20130619
  Receipt Date: 20130619
  Transmission Date: 20140414
  Serious: Yes (Other)
  Sender: FDA-Public Use
  Company Number: 2013060002

PATIENT
  Age: 6 Year
  Sex: Male

DRUGS (1)
  1. D-PENICILLAMINE [Suspect]
     Indication: HEPATO-LENTICULAR DEGENERATION

REACTIONS (1)
  - Neutropenia [None]
